FAERS Safety Report 8799374 (Version 2)
Quarter: 2012Q4

REPORT INFORMATION
  Report Type: 
  Country: FI (occurrence: JP)
  Receive Date: 20120920
  Receipt Date: 20121012
  Transmission Date: 20130627
  Serious: Yes (Hospitalization, Other)
  Sender: FDA-Public Use
  Company Number: JP-009507513-1209JPN006665

PATIENT
  Age: 37 Year
  Sex: Male

DRUGS (1)
  1. TAFLUPROST [Suspect]
     Indication: OPEN ANGLE GLAUCOMA
     Dosage: 2 Gtt, qd
     Route: 047
     Dates: start: 20090205, end: 20120720

REACTIONS (1)
  - Drug hypersensitivity [Recovered/Resolved]
